FAERS Safety Report 5387012-9 (Version None)
Quarter: 2007Q3

REPORT INFORMATION
  Report Type: 
  Country: None (occurrence: None)
  Receive Date: 20070713
  Receipt Date: 20070706
  Transmission Date: 20080115
  Serious: Yes (Hospitalization)
  Sender: FDA-Public Use
  Company Number: GB-PFIZER INC-2007055929

PATIENT
  Age: 21 Year
  Sex: Male

DRUGS (1)
  1. ATARAX [Suspect]
     Indication: PRURITUS
     Route: 048
     Dates: start: 20070401, end: 20070611

REACTIONS (2)
  - MUSCLE SPASMS [None]
  - TREMOR [None]
